FAERS Safety Report 7377787-1 (Version None)
Quarter: 2011Q1

REPORT INFORMATION
  Report Type: 
  Country: None (occurrence: None)
  Receive Date: 20110316
  Receipt Date: 20110308
  Transmission Date: 20110831
  Serious: Yes (Other)
  Sender: FDA-Public Use
  Company Number: US-1185292

PATIENT
  Age: 81 Year
  Sex: Female

DRUGS (4)
  1. TRAVATAN [Suspect]
     Indication: GLAUCOMA
     Dosage: (OPHTHALMIC)
     Route: 047
  2. ANTIHYPERTENSIVES [Concomitant]
  3. COUMADIN [Concomitant]
  4. SYNTHROID [Concomitant]

REACTIONS (2)
  - SKIN HYPERPIGMENTATION [None]
  - TRICHIASIS [None]
